FAERS Safety Report 4446988-4 (Version None)
Quarter: 2004Q3

REPORT INFORMATION
  Report Type: 
  Country: None (occurrence: None)
  Receive Date: 20040812
  Receipt Date: 20040422
  Transmission Date: 20050211
  Serious: No
  Sender: FDA-Public Use
  Company Number: USA040465674

PATIENT
  Age: 74 Year
  Sex: Male
  Weight: 93 kg

DRUGS (8)
  1. CIALIS [Suspect]
     Indication: ERECTILE DYSFUNCTION
     Dosage: 20 MG
  2. GLUCOPHAGE [Concomitant]
  3. LEXAPRO [Concomitant]
  4. SULAR [Concomitant]
  5. CELEBREX [Concomitant]
  6. COLCHICINE [Concomitant]
  7. ZOCOR [Concomitant]
  8. DIOVAN [Concomitant]

REACTIONS (1)
  - THERAPEUTIC RESPONSE DECREASED [None]
